FAERS Safety Report 25248270 (Version 1)
Quarter: 2025Q2

REPORT INFORMATION
  Report Type: Spontaneous
  Country: US (occurrence: US)
  Receive Date: 20250429
  Receipt Date: 20250429
  Transmission Date: 20250717
  Serious: No
  Sender: TEVA
  Company Number: US-TEVA-VS-3322855

PATIENT
  Age: 33 Year
  Sex: Male

DRUGS (3)
  1. UZEDY [Suspect]
     Active Substance: RISPERIDONE
     Indication: Schizophrenia
     Route: 065
     Dates: start: 202411
  2. UZEDY [Suspect]
     Active Substance: RISPERIDONE
     Dosage: STRENGTH: 250/0.7MG/ML
     Route: 065
  3. RISPERIDONE [Concomitant]
     Active Substance: RISPERIDONE
     Indication: Product used for unknown indication
     Dosage: DAILY DOSE: 6 MG
     Route: 048

REACTIONS (5)
  - Hypersomnia [Unknown]
  - Therapeutic product effect incomplete [Unknown]
  - Nausea [Unknown]
  - Product use issue [Unknown]
  - Product prescribing error [Unknown]
